FAERS Safety Report 16869430 (Version 1)
Quarter: 2019Q3

REPORT INFORMATION
  Report Type: Report from Study
  Country: EG (occurrence: EG)
  Receive Date: 20190930
  Receipt Date: 20190930
  Transmission Date: 20191005
  Serious: Yes (Hospitalization, Other)
  Sender: FDA-Public Use
  Company Number: PHHY2019EG218338

PATIENT
  Age: 42 Year
  Sex: Female

DRUGS (10)
  1. ZOLADEX [Concomitant]
     Active Substance: GOSERELIN ACETATE
     Indication: PRODUCT USED FOR UNKNOWN INDICATION
     Dosage: UNK
     Route: 065
     Dates: start: 20190801
  2. EPANUTIN [Concomitant]
     Active Substance: PHENYTOIN SODIUM
     Indication: SEIZURE
     Dosage: 100 MG, Q6H
     Route: 065
  3. AFINITOR [Suspect]
     Active Substance: EVEROLIMUS
     Dosage: 5 MG, QD
     Route: 048
     Dates: start: 20190826
  4. AFINITOR [Suspect]
     Active Substance: EVEROLIMUS
     Dosage: 5 MG, BID
     Route: 048
     Dates: start: 20190905, end: 20190914
  5. OCTATRON [Concomitant]
     Indication: ANTIOXIDANT THERAPY
     Dosage: UNK
     Route: 065
     Dates: start: 20190801
  6. AFINITOR [Suspect]
     Active Substance: EVEROLIMUS
     Dosage: 5 MG, UNK
     Route: 048
     Dates: start: 20190921
  7. FEMARA [Concomitant]
     Active Substance: LETROZOLE
     Indication: PRODUCT USED FOR UNKNOWN INDICATION
     Dosage: UNK
     Route: 065
  8. CALCITRON [Concomitant]
     Indication: CALCIUM DEFICIENCY
     Dosage: UNK, ONCE A DAY
     Route: 065
     Dates: start: 20190801
  9. CONTROLOC [Concomitant]
     Active Substance: PANTOPRAZOLE SODIUM
     Indication: PRODUCT USED FOR UNKNOWN INDICATION
     Dosage: UNK UNK, QD IN THE MORNING
     Route: 065
  10. AFINITOR [Suspect]
     Active Substance: EVEROLIMUS
     Indication: LYMPHOMA
     Dosage: 5 MG, BID
     Route: 048
     Dates: start: 20190801, end: 20190820

REACTIONS (7)
  - Dizziness [Not Recovered/Not Resolved]
  - Abdominal pain upper [Not Recovered/Not Resolved]
  - Stomatitis [Recovered/Resolved]
  - Product use in unapproved indication [Unknown]
  - Hypersensitivity [Recovered/Resolved]
  - Vomiting [Not Recovered/Not Resolved]
  - Fatigue [Unknown]

NARRATIVE: CASE EVENT DATE: 201908
